FAERS Safety Report 7270947-X (Version None)
Quarter: 2011Q1

REPORT INFORMATION
  Report Type: 
  Country: None (occurrence: None)
  Receive Date: 20110202
  Receipt Date: 20110128
  Transmission Date: 20110831
  Serious: Yes (Hospitalization, Other)
  Sender: FDA-Public Use
  Company Number: AT-ABBOTT-11P-009-0697500-00

PATIENT
  Sex: Male
  Weight: 80 kg

DRUGS (7)
  1. HUMIRA [Suspect]
     Dates: start: 20110117
  2. HUMIRA [Suspect]
  3. ENTOCORT EC [Concomitant]
     Indication: CROHN'S DISEASE
     Route: 048
     Dates: start: 20101222, end: 20110125
  4. HUMIRA [Suspect]
     Indication: CROHN'S DISEASE
     Dosage: LOADING DOSE
     Route: 058
     Dates: start: 20100330
  5. HUMIRA [Suspect]
     Dates: start: 20110117, end: 20110117
  6. RHINOMER [Concomitant]
     Indication: PRODUCT USED FOR UNKNOWN INDICATION
     Dosage: AS NEEDED
  7. MEXALEN [Concomitant]
     Indication: PAIN
     Dosage: 4 IN 1 DAY AS NEEDED

REACTIONS (11)
  - ILEAL ULCER [None]
  - ANASTOMOTIC STENOSIS [None]
  - MALAISE [None]
  - ABDOMINAL PAIN [None]
  - ILEITIS [None]
  - DIARRHOEA [None]
  - DRUG INEFFECTIVE [None]
  - INFLAMMATION [None]
  - WEIGHT DECREASED [None]
  - NAUSEA [None]
  - ABDOMINAL PAIN LOWER [None]
